FAERS Safety Report 10682488 (Version 1)
Quarter: 2014Q4

REPORT INFORMATION
  Report Type: Spontaneous
  Country: JP (occurrence: None)
  Receive Date: 20141224
  Receipt Date: 20141224
  Transmission Date: 20150529
  Serious: Yes (Life-Threatening)
  Sender: FDA-Public Use
  Company Number: DX3140091

PATIENT
  Age: 52 Year
  Sex: Male

DRUGS (11)
  1. DORMICUM INJECTION 10 MG (MIDAZOLAM) [Suspect]
     Active Substance: MIDAZOLAM\MIDAZOLAM HYDROCHLORIDE
     Indication: SEDATION
     Dosage: 3 - 20 MG/HR  (1 IN 1 DAY)  INTRAVENOUS
     Route: 042
     Dates: start: 20120904, end: 20120913
  2. DIPRIVAN [Suspect]
     Active Substance: PROPOFOL
     Indication: SEDATION
     Dosage: 5 - 16 MG/HR  (1 IN 1 DAY)  INTRAVENOUS
     Route: 042
     Dates: start: 20120908, end: 20120914
  3. PRECEDEX [Suspect]
     Active Substance: DEXMEDETOMIDINE HYDROCHLORIDE
     Indication: SEDATION
     Dosage: 20 - 40 MG/HR (1 IN 1 DAY) INTRAVENOUS
     Route: 042
     Dates: start: 20120909, end: 20120913
  4. FENTANYL CITRATE. [Suspect]
     Active Substance: FENTANYL CITRATE
     Indication: SEDATION
     Dosage: 10 - 50 MCG/HR (1 IN 1 DAY) INTRAVENOUS
     Route: 042
     Dates: start: 20120904, end: 20121115
  5. DANTRIUM [Suspect]
     Active Substance: DANTROLENE SODIUM
     Indication: HYPOTONIA
     Dosage: 50 MG/DAY  (2 IN 1 DAY)  INTRAVENOUS
     Route: 042
     Dates: start: 20120922, end: 20120923
  6. SULBACILLIN FOR INJECTION (SULBACTAM SODIUM/AMPICILLIN SODIUM) [Suspect]
     Active Substance: AMPICILLIN SODIUM\SULBACTAM SODIUM
     Indication: INFECTION
     Dosage: 3 - 6 G TO 4.5 - 9 G  (2 - 3 IN 1 DAY)  INTRAVENOUS
     Route: 042
     Dates: start: 20120914, end: 20120919
  7. UNKNOWN (MAGNESIUM SULFATE HYDRATE) [Suspect]
     Active Substance: MAGNESIUM SULFATE HEPTAHYDRATE
     Indication: HYPOTONIA
     Dosage: 20-60 MEQ/DAY  (1 IN 1 DAY)  INTRAVENOUS
     Route: 042
     Dates: start: 20120908, end: 20121113
  8. CEFAMEZIN ALPHA FOR INJECTION (CEFAZOLIN SODIUM) [Suspect]
     Active Substance: CEFAZOLIN SODIUM
     Indication: INFECTION
     Dosage: 3  G  (3 IN 1 DAY)  INTRAVENOUS
     Route: 042
     Dates: start: 20120913, end: 20120913
  9. RAVONAL (THIOPENTAL SODIUM) [Suspect]
     Active Substance: THIOPENTAL
     Indication: SEDATION
     Dosage: 200-250 MG/HR  (1 IN 1 DAY)  INTRAVENOUS
     Route: 042
     Dates: start: 20120914, end: 20120922
  10. VANCOMYCIN HYDROCHLORIDE FOR I.V. INFUSION [MEEK] (VANCOMYCIN HYDROCHLORIDE) [Suspect]
     Active Substance: VANCOMYCIN HYDROCHLORIDE
     Indication: INFECTION
     Dosage: 1 G  (1 IN 1 DAY)  INTRAVENOUS DRIP (DRIP)
     Route: 041
     Dates: start: 20120922, end: 20120925
  11. PENICILIIN G POTASSIUM (BENZYLPENICILLIN POTASSIUM) [Suspect]
     Active Substance: PENICILLIN G POTASSIUM
     Indication: INFECTION
     Dosage: 2400 UNITS (6 IN 1 DAY)  INTRAVENOUS
     Route: 042
     Dates: start: 20120904, end: 20120912

REACTIONS (4)
  - Multi-organ failure [None]
  - Drug eruption [None]
  - Haemodialysis [None]
  - Histiocytosis haematophagic [None]

NARRATIVE: CASE EVENT DATE: 20120923
